FAERS Safety Report 8978736 (Version 1)
Quarter: 2012Q4

REPORT INFORMATION
  Report Type: Spontaneous
  Country: GB (occurrence: None)
  Receive Date: 20121108
  Receipt Date: 20121108
  Transmission Date: 20130627
  Serious: Yes (Other)
  Sender: FDA-Public Use
  Company Number: 2012MA012923

PATIENT
  Age: 68 Year
  Sex: Female

DRUGS (5)
  1. GABAPENTIN [Suspect]
     Route: 048
     Dates: start: 20120914, end: 20120928
  2. SIMVASTATIN [Concomitant]
  3. SOTALOL [Concomitant]
  4. TOLTERODINE [Concomitant]
  5. WARFARIN [Concomitant]

REACTIONS (2)
  - Dizziness [None]
  - Depressed mood [None]
